FAERS Safety Report 9124707 (Version 1)
Quarter: 2013Q1

REPORT INFORMATION
  Report Type: Report from Study
  Country: US (occurrence: US)
  Receive Date: 20130116
  Receipt Date: 20130116
  Transmission Date: 20140127
  Serious: Yes (Hospitalization)
  Sender: FDA-Public Use
  Company Number: US-PFIZER INC-2013014703

PATIENT
  Age: 7 Year
  Sex: Female
  Weight: 24.04 kg

DRUGS (2)
  1. REVATIO [Suspect]
     Dosage: UNK
  2. REMODULIN [Suspect]
     Indication: PULMONARY ARTERIAL HYPERTENSION
     Dosage: 115.2 UG/KG, (0.08 UG/KG, 1 IN 1 MIN), DAILY
     Route: 042
     Dates: start: 20121206

REACTIONS (1)
  - Surgery [Unknown]
